FAERS Safety Report 4989899-8 (Version None)
Quarter: 2006Q2

REPORT INFORMATION
  Report Type: 
  Country: None (occurrence: None)
  Receive Date: 20060424
  Receipt Date: 20060411
  Transmission Date: 20061013
  Serious: Yes (Other)
  Sender: FDA-Public Use
  Company Number: 2006BH008070

PATIENT
  Age: 44 Year
  Sex: Female

DRUGS (1)
  1. GAMMAGARD LIQUID [Suspect]
     Dosage: IV
     Route: 042
     Dates: start: 20051001

REACTIONS (1)
  - CEREBROVASCULAR ACCIDENT [None]
